FAERS Safety Report 9270404 (Version 1)
Quarter: 2013Q2

REPORT INFORMATION
  Report Type: Spontaneous
  Country: US (occurrence: US)
  Receive Date: 20130503
  Receipt Date: 20130503
  Transmission Date: 20140414
  Serious: No
  Sender: FDA-Public Use
  Company Number: US-009507513-1304USA015461

PATIENT
  Age: 8 Year
  Sex: Female
  Weight: 30.39 kg

DRUGS (3)
  1. CLARITIN [Suspect]
     Indication: SEASONAL ALLERGY
     Dosage: UNK, PRN
     Route: 048
  2. CLARITIN [Suspect]
     Indication: ALLERGY TO ANIMAL
     Dosage: 10 MG, ONCE
     Route: 048
     Dates: start: 20130416
  3. CLARITIN [Suspect]
     Dosage: 10 MG, ONCE
     Route: 048
     Dates: start: 20130416

REACTIONS (2)
  - Drug ineffective [Unknown]
  - Overdose [Not Recovered/Not Resolved]
